FAERS Safety Report 14770155 (Version 1)
Quarter: 2018Q2

REPORT INFORMATION
  Report Type: Spontaneous
  Country: US (occurrence: US)
  Receive Date: 20180411
  Receipt Date: 20180411
  Transmission Date: 20180711
  Serious: Yes (Hospitalization)
  Sender: FDA-Public Use
  Company Number: None

PATIENT
  Age: 47 Year
  Sex: Female

DRUGS (6)
  1. HYDROCO [Concomitant]
  2. PYRIDIUM [Concomitant]
     Active Substance: PHENAZOPYRIDINE
  3. TIZANIDINE. [Concomitant]
     Active Substance: TIZANIDINE
  4. TOPIRAMATE. [Concomitant]
     Active Substance: TOPIRAMATE
  5. BOTOX [Suspect]
     Active Substance: ONABOTULINUMTOXINA
     Indication: MIGRAINE
     Dosage: ?          OTHER FREQUENCY:EVERY 90 DAYS;?
     Route: 030
  6. ALPRAZOLAM. [Concomitant]
     Active Substance: ALPRAZOLAM

REACTIONS (1)
  - Surgery [None]

NARRATIVE: CASE EVENT DATE: 20180410
